FAERS Safety Report 9801690 (Version 2)
Quarter: 2014Q1

REPORT INFORMATION
  Report Type: Spontaneous
  Country: US (occurrence: US)
  Receive Date: 20140107
  Receipt Date: 20140305
  Transmission Date: 20141002
  Serious: Yes (Hospitalization)
  Sender: FDA-Public Use
  Company Number: US-ASTRAZENECA-2014SE00091

PATIENT
  Age: 81 Year
  Sex: Female
  Weight: 67.6 kg

DRUGS (14)
  1. PULMICORT FLEXHALER [Suspect]
     Indication: ASTHMA
     Dosage: 180 MCG 1 INHALATION BID
     Route: 055
     Dates: start: 2006, end: 20131228
  2. PULMICORT FLEXHALER [Suspect]
     Indication: ASTHMA
     Route: 055
  3. NEXIUM [Suspect]
     Indication: OESOPHAGEAL DISORDER
     Route: 048
     Dates: start: 1996
  4. OMEPRAZOLE [Suspect]
     Indication: OESOPHAGEAL DISORDER
     Route: 048
  5. ALBUTEROL [Suspect]
     Route: 065
  6. ATROVENT HFA [Concomitant]
     Dosage: 2 TO 4 PUFFS PRN
     Route: 055
  7. METROPOLOL TARTRATE [Concomitant]
     Indication: ATRIAL FIBRILLATION
  8. ASPIRIN [Concomitant]
  9. CALCIUM PLUS D [Concomitant]
  10. VITAMIN D [Concomitant]
  11. MULTIVITAMIN FOR ADULTS OVER 50 [Concomitant]
     Dosage: DAILY
  12. ACIDOPHOLUS [Concomitant]
     Indication: GASTROINTESTINAL DISORDER
     Dosage: DAILY
  13. VITAMIN C [Concomitant]
  14. PECTIN [Concomitant]
     Indication: GASTROINTESTINAL DISORDER
     Dosage: DAILY

REACTIONS (6)
  - Atrial fibrillation [Recovered/Resolved]
  - Heart rate increased [Recovered/Resolved]
  - Anxiety [Unknown]
  - Off label use [Unknown]
  - Intentional drug misuse [Unknown]
  - Drug dose omission [Unknown]
